FAERS Safety Report 24021982 (Version 1)
Quarter: 2024Q2

REPORT INFORMATION
  Report Type: Report from Study
  Country: FR (occurrence: FR)
  Receive Date: 20240627
  Receipt Date: 20240627
  Transmission Date: 20240715
  Serious: Yes (Other)
  Sender: FDA-Public Use
  Company Number: FR-JNJFOC-20230440084

PATIENT
  Age: 16 Year
  Sex: Female

DRUGS (1)
  1. REMICADE [Suspect]
     Active Substance: INFLIXIMAB
     Indication: Crohn^s disease
     Route: 041
     Dates: start: 20140416, end: 20161005

REACTIONS (14)
  - Perineal abscess [Recovered/Resolved]
  - Erysipelas [Recovered/Resolved]
  - Aphthous ulcer [Recovered/Resolved]
  - Asthenia [Recovered/Resolved]
  - Diarrhoea [Recovered/Resolved]
  - Eyelid oedema [Recovered/Resolved]
  - Pyrexia [Recovered/Resolved]
  - Fistula [Recovered/Resolved]
  - Arthralgia [Recovered/Resolved]
  - Inflammation [Recovered/Resolved]
  - Splenomegaly [Recovered/Resolved]
  - Myalgia [Recovered/Resolved]
  - Ear infection [Recovered/Resolved]
  - Lipomatosis [Recovered/Resolved]

NARRATIVE: CASE EVENT DATE: 20170513
